FAERS Safety Report 6682931-5 (Version None)
Quarter: 2010Q2

REPORT INFORMATION
  Report Type: 
  Country: None (occurrence: None)
  Receive Date: 20100415
  Receipt Date: 20100407
  Transmission Date: 20101027
  Serious: Yes (Other)
  Sender: FDA-Public Use
  Company Number: JP-ROCHE-696699

PATIENT
  Age: 76 Year

DRUGS (6)
  1. HERCEPTIN [Suspect]
     Indication: BREAST CANCER
     Dosage: DISCONTINUED
     Route: 041
     Dates: start: 20090603, end: 20100310
  2. GASTER D [Suspect]
     Indication: DRUG USE FOR UNKNOWN INDICATION
     Dosage: DOSAGE IS UNCERTAIN.
     Route: 048
  3. ANPLAG [Suspect]
     Indication: DRUG USE FOR UNKNOWN INDICATION
     Dosage: DRUG:ANPLAG(SARPOGRELATE HYDROCHLORIDE), FORM:PERORAL AGENT, DOSAGE IS UNCERTAIN.
     Route: 048
  4. DIOVAN [Suspect]
     Indication: DRUG USE FOR UNKNOWN INDICATION
     Dosage: DOSAGE IS UNCERTAIN.
     Route: 048
  5. AMLODIN [Suspect]
     Indication: DRUG USE FOR UNKNOWN INDICATION
     Dosage: AMLODIN OD(AMLODIPINE BESILATE), DOSAGE IS UNCERTAIN.
     Route: 048
  6. SEIBULE [Suspect]
     Indication: DRUG USE FOR UNKNOWN INDICATION
     Dosage: DOSAGE IS UNCERTAIN.
     Route: 048

REACTIONS (1)
  - RENAL IMPAIRMENT [None]
